FAERS Safety Report 6989753-6 (Version None)
Quarter: 2010Q3

REPORT INFORMATION
  Report Type: 
  Country: None (occurrence: None)
  Receive Date: 20100916
  Receipt Date: 20100218
  Transmission Date: 20110219
  Serious: Yes (Other)
  Sender: FDA-Public Use
  Company Number: CH-PFIZER INC-2010011333

PATIENT
  Sex: Female
  Weight: 55 kg

DRUGS (2)
  1. LYRICA [Suspect]
     Indication: GENERALISED ANXIETY DISORDER
     Dosage: 50 MG, 2X/DAY
     Route: 048
     Dates: start: 20100124, end: 20100127
  2. CEFUROXIME [Concomitant]
     Dosage: UNK
     Route: 048

REACTIONS (3)
  - AGITATION [None]
  - PANIC ATTACK [None]
  - RESTLESS LEGS SYNDROME [None]
